FAERS Safety Report 7118925-5 (Version None)
Quarter: 2010Q4

REPORT INFORMATION
  Report Type: 
  Country: None (occurrence: None)
  Receive Date: 20101123
  Receipt Date: 20101116
  Transmission Date: 20110411
  Serious: Yes (Hospitalization, Other)
  Sender: FDA-Public Use
  Company Number: BR-ROCHE-739436

PATIENT
  Sex: Female
  Weight: 72 kg

DRUGS (7)
  1. TOCILIZUMAB [Suspect]
     Indication: RHEUMATOID ARTHRITIS
     Dosage: FORM: INFUSIONS, ROUTE: ENDOVENOUS, RECEIVED FOUR INFUSIONS
     Route: 042
     Dates: start: 20100512, end: 20100101
  2. AMITRIPTYLINE HCL [Concomitant]
  3. ALPRAZOLAM [Concomitant]
  4. METHOTREXATE [Concomitant]
  5. CHLOROQUINE PHOSPHATE [Concomitant]
  6. DICLOFENAC SODIUM [Concomitant]
  7. OMEPRAZOLE [Concomitant]

REACTIONS (3)
  - ABASIA [None]
  - CELLULITIS [None]
  - OEDEMA PERIPHERAL [None]
